FAERS Safety Report 12487417 (Version 1)
Quarter: 2016Q2

REPORT INFORMATION
  Report Type: Report from Study
  Country: IN (occurrence: IN)
  Receive Date: 20160622
  Receipt Date: 20160622
  Transmission Date: 20160815
  Serious: Yes (Death, Other)
  Sender: FDA-Public Use
  Company Number: IN-ROCHE-1650840

PATIENT
  Age: 30 Year
  Sex: Male

DRUGS (10)
  1. LASIX [Concomitant]
     Active Substance: FUROSEMIDE
     Route: 048
     Dates: start: 20150320, end: 20151009
  2. NICARDIA [Concomitant]
     Route: 048
     Dates: start: 20150320, end: 20151009
  3. FOLIC ACID. [Concomitant]
     Active Substance: FOLIC ACID
     Route: 048
     Dates: start: 20150320, end: 20151009
  4. SULFAMETHOXAZOLE/TRIMETHOPRIM [Concomitant]
     Active Substance: SULFAMETHOXAZOLE\TRIMETHOPRIM
     Route: 048
     Dates: start: 20150320, end: 20151009
  5. CELLCEPT [Suspect]
     Active Substance: MYCOPHENOLATE MOFETIL\MYCOPHENOLATE MOFETIL HYDROCHLORIDE
     Indication: RENAL TRANSPLANT
     Route: 048
     Dates: start: 20150320, end: 20151009
  6. TACROLIMUS. [Concomitant]
     Active Substance: TACROLIMUS
     Route: 048
     Dates: start: 20150320, end: 20151009
  7. RANITIDINE. [Concomitant]
     Active Substance: RANITIDINE
     Route: 048
     Dates: start: 20150320, end: 20151009
  8. REPAGLINIDE. [Concomitant]
     Active Substance: REPAGLINIDE
     Route: 048
     Dates: start: 20150320, end: 20151009
  9. VALCYTE [Concomitant]
     Active Substance: VALGANCICLOVIR HYDROCHLORIDE
     Route: 048
     Dates: start: 20150320, end: 20151009
  10. LEVOFLOX [Concomitant]
     Active Substance: LEVOFLOXACIN
     Route: 048
     Dates: start: 20150320, end: 20151009

REACTIONS (2)
  - Blood creatinine increased [Unknown]
  - Renal failure [Fatal]

NARRATIVE: CASE EVENT DATE: 20151117
